FAERS Safety Report 19946744 (Version 1)
Quarter: 2021Q4

REPORT INFORMATION
  Report Type: Spontaneous
  Country: US (occurrence: US)
  Receive Date: 20211012
  Receipt Date: 20211012
  Transmission Date: 20220304
  Serious: Yes (Other)
  Sender: FDA-Public Use
  Company Number: US-GLAXOSMITHKLINE-US2021GSK211042

PATIENT
  Sex: Female

DRUGS (5)
  1. RANITIDINE [Suspect]
     Active Substance: RANITIDINE
     Indication: Nausea
     Dosage: 25 MG, QD
     Route: 065
     Dates: start: 201701, end: 202001
  2. ZANTAC [Suspect]
     Active Substance: RANITIDINE HYDROCHLORIDE
     Indication: Nausea
     Dosage: 25 MG, QD
     Route: 065
     Dates: start: 201701, end: 202001
  3. ZANTAC [Suspect]
     Active Substance: RANITIDINE HYDROCHLORIDE
     Indication: Nausea
     Dosage: 25 MG, QD
     Route: 065
     Dates: start: 201701, end: 202001
  4. RANITIDINE [Suspect]
     Active Substance: RANITIDINE
     Indication: Nausea
     Dosage: 25 MG, QD
     Route: 065
     Dates: start: 201701, end: 202001
  5. RANITIDINE [Suspect]
     Active Substance: RANITIDINE
     Indication: Nausea
     Dosage: 25 MG, QD
     Route: 065
     Dates: start: 201701, end: 202001

REACTIONS (1)
  - Renal cancer [Unknown]
